FAERS Safety Report 9509733 (Version 1)
Quarter: 2013Q3

REPORT INFORMATION
  Report Type: Spontaneous
  Country: US (occurrence: US)
  Receive Date: 20130909
  Receipt Date: 20130909
  Transmission Date: 20140515
  Serious: No
  Sender: FDA-Public Use
  Company Number: US-009507513-1309USA002391

PATIENT
  Sex: Female

DRUGS (1)
  1. AFRIN EXTRA MOISTURIZING NASAL SPRAY [Suspect]
     Indication: PRODUCT USED FOR UNKNOWN INDICATION
     Dosage: UNK, ONCE
     Route: 045

REACTIONS (1)
  - Urticaria [Unknown]
